FAERS Safety Report 25090093 (Version 3)
Quarter: 2025Q1

REPORT INFORMATION
  Report Type: Spontaneous
  Country: CN (occurrence: CN)
  Receive Date: 20250318
  Receipt Date: 20250325
  Transmission Date: 20250409
  Serious: Yes (Hospitalization, Other)
  Sender: ORGANON
  Company Number: CN-ORGANON-O2503CHN001396

PATIENT
  Age: 92 Year
  Sex: Female
  Weight: 50 kg

DRUGS (5)
  1. SINGULAIR [Suspect]
     Active Substance: MONTELUKAST SODIUM
     Indication: Chronic obstructive pulmonary disease
     Dosage: 10MG, QD, ORALLY||
     Route: 048
     Dates: start: 20250202, end: 20250228
  2. SINGULAIR [Suspect]
     Active Substance: MONTELUKAST SODIUM
     Indication: Asthma
  3. LEVOFLOXACIN SODIUM [Suspect]
     Active Substance: LEVOFLOXACIN SODIUM
     Indication: Chronic obstructive pulmonary disease
     Dosage: 0.5G, QD, INTRAVENOUS DRIP||
     Route: 041
     Dates: start: 20250217, end: 20250222
  4. VORICONAZOLE [Suspect]
     Active Substance: VORICONAZOLE
     Indication: Bronchopulmonary aspergillosis
  5. VORICONAZOLE [Suspect]
     Active Substance: VORICONAZOLE
     Dosage: 0.16G, BID, INTRAVENOUS DRIP||
     Route: 041
     Dates: start: 20250214, end: 20250217

REACTIONS (15)
  - Disorganised speech [Unknown]
  - Depressed level of consciousness [Unknown]
  - Altered state of consciousness [Unknown]
  - Mental fatigue [Unknown]
  - Dyspnoea [Unknown]
  - Dyspnoea [Unknown]
  - Somnolence [Not Recovered/Not Resolved]
  - Dysarthria [Not Recovered/Not Resolved]
  - Dysphoria [Unknown]
  - Tremor [Unknown]
  - Confusional state [Unknown]
  - Muscle spasms [Unknown]
  - Cerebrovascular disorder [Unknown]
  - Logorrhoea [Unknown]
  - Product use in unapproved indication [Unknown]

NARRATIVE: CASE EVENT DATE: 20250202
